FAERS Safety Report 14146813 (Version 1)
Quarter: 2017Q4

REPORT INFORMATION
  Report Type: Spontaneous
  Country: US (occurrence: US)
  Receive Date: 20171031
  Receipt Date: 20171031
  Transmission Date: 20180321
  Serious: No
  Sender: FDA-Public Use
  Company Number: US-PERRIGO-17US026880

PATIENT
  Age: 78 Year
  Sex: Female
  Weight: 65.76 kg

DRUGS (3)
  1. LORAZEPAM. [Concomitant]
     Active Substance: LORAZEPAM
     Indication: ANXIETY
     Dosage: UNK
     Route: 065
  2. DOXYLAMINE SUCCINATE. [Suspect]
     Active Substance: DOXYLAMINE SUCCINATE
     Indication: INSOMNIA
     Dosage: 25 MG, QHS
     Route: 048
     Dates: start: 20170904, end: 20170917
  3. ATENOLOL. [Suspect]
     Active Substance: ATENOLOL
     Indication: HYPERTENSION
     Dosage: UNKNOWN, UNKNOWN
     Route: 048

REACTIONS (1)
  - Dizziness [Not Recovered/Not Resolved]

NARRATIVE: CASE EVENT DATE: 20170904
